FAERS Safety Report 4413881-2 (Version None)
Quarter: 2004Q3

REPORT INFORMATION
  Report Type: 
  Country: None (occurrence: None)
  Receive Date: 20040728
  Receipt Date: 20040713
  Transmission Date: 20050211
  Serious: Yes (Hospitalization)
  Sender: FDA-Public Use
  Company Number: EWC040438988

PATIENT
  Age: 68 Year
  Sex: Female

DRUGS (5)
  1. GEMZAR [Suspect]
     Dosage: 1.2 G OTHER
     Route: 042
     Dates: start: 20040211
  2. NAVELBINE [Concomitant]
  3. SOLU MODERIN          (METHYLPREDNISOLONE SODIUM SUCCINATE) [Concomitant]
  4. PRIMPERAN TAB [Concomitant]
  5. LORAZEPAM [Concomitant]

REACTIONS (1)
  - PANCREATITIS [None]
